FAERS Safety Report 15853597 (Version 3)
Quarter: 2019Q1

REPORT INFORMATION
  Report Type: Report from Study
  Country: CN (occurrence: CN)
  Receive Date: 20190122
  Receipt Date: 20190325
  Transmission Date: 20190417
  Serious: Yes (Other)
  Sender: FDA-Public Use
  Company Number: CN-JNJFOC-20190120894

PATIENT
  Age: 25 Year
  Sex: Male
  Weight: 54 kg

DRUGS (4)
  1. CLOFAZIMINE [Suspect]
     Active Substance: CLOFAZIMINE
     Indication: TUBERCULOSIS
     Route: 065
  2. PROTHIONAMIDE [Suspect]
     Active Substance: PROTIONAMIDE
     Indication: TUBERCULOSIS
     Route: 065
  3. SIRTURO [Suspect]
     Active Substance: BEDAQUILINE FUMARATE
     Indication: TUBERCULOSIS
     Route: 048
     Dates: start: 20181129, end: 2018
  4. SIRTURO [Suspect]
     Active Substance: BEDAQUILINE FUMARATE
     Indication: TUBERCULOSIS
     Route: 048

REACTIONS (3)
  - Intentional product use issue [Unknown]
  - Off label use [Unknown]
  - Hepatotoxicity [Recovering/Resolving]

NARRATIVE: CASE EVENT DATE: 20181213
